FAERS Safety Report 17692328 (Version 1)
Quarter: 2020Q2

REPORT INFORMATION
  Report Type: Spontaneous
  Country: US (occurrence: US)
  Receive Date: 20200422
  Receipt Date: 20200422
  Transmission Date: 20200714
  Serious: No
  Sender: FDA-Public Use
  Company Number: US-PFIZER INC-2020137870

PATIENT
  Age: 43 Year
  Sex: Female

DRUGS (2)
  1. DILANTIN [Suspect]
     Active Substance: PHENYTOIN
     Dosage: 500 MG, TWICE DAILY (5 CAPSULES BID (TWO TIMES A DAY))
  2. DILANTIN [Suspect]
     Active Substance: PHENYTOIN
     Indication: EPILEPSY
     Dosage: 100 MG, UNK

REACTIONS (2)
  - Off label use [Unknown]
  - Drug ineffective [Unknown]
